FAERS Safety Report 11602109 (Version 1)
Quarter: 2015Q4

REPORT INFORMATION
  Report Type: Spontaneous
  Country: US (occurrence: US)
  Receive Date: 20151006
  Receipt Date: 20151006
  Transmission Date: 20160304
  Serious: No
  Sender: FDA-Public Use
  Company Number: US-AMGEN-USASP2015036205

PATIENT
  Age: 54 Year
  Sex: Female

DRUGS (1)
  1. PROLIA [Suspect]
     Active Substance: DENOSUMAB
     Indication: PRODUCT USED FOR UNKNOWN INDICATION
     Dosage: UNK UNK, UNK
     Route: 065
     Dates: start: 20150401

REACTIONS (12)
  - Fibromyalgia [Unknown]
  - Influenza like illness [Unknown]
  - Memory impairment [Unknown]
  - Migraine [Unknown]
  - Nausea [Unknown]
  - Pain in jaw [Unknown]
  - Toothache [Unknown]
  - Mucosal pain [Unknown]
  - Pain of skin [Recovering/Resolving]
  - Sleep disorder due to a general medical condition [Recovering/Resolving]
  - Dizziness [Unknown]
  - Limb discomfort [Unknown]
